FAERS Safety Report 7576413-6 (Version None)
Quarter: 2011Q2

REPORT INFORMATION
  Report Type: 
  Country: None (occurrence: None)
  Receive Date: 20110628
  Receipt Date: 20110601
  Transmission Date: 20111010
  Serious: Yes (Other)
  Sender: FDA-Public Use
  Company Number: US-BAYER-2011-021514

PATIENT
  Age: 40 Year
  Sex: Female
  Weight: 65.76 kg

DRUGS (6)
  1. YASMIN [Suspect]
     Indication: ORAL CONTRACEPTION
     Dosage: UNK
     Route: 048
     Dates: start: 20010701, end: 20060901
  2. YASMIN [Suspect]
     Indication: MENORRHAGIA
  3. SINGULAIR [Concomitant]
     Dosage: 10 MG, QD
  4. ALBUTEROL INHALER [Concomitant]
     Dosage: UNK UNK, PRN
  5. YASMIN [Suspect]
     Indication: ACNE
  6. ASPIRIN [Concomitant]
     Dosage: 325 MG, QD

REACTIONS (5)
  - THROMBOSIS [None]
  - DEEP VEIN THROMBOSIS [None]
  - INJURY [None]
  - VEIN DISORDER [None]
  - PULMONARY EMBOLISM [None]
